FAERS Safety Report 7855490-9 (Version None)
Quarter: 2011Q4

REPORT INFORMATION
  Report Type: 
  Country: None (occurrence: None)
  Receive Date: 20111026
  Receipt Date: 20111012
  Transmission Date: 20120403
  Serious: Yes (Hospitalization)
  Sender: FDA-Public Use
  Company Number: GB-ROCHE-GNE291206

PATIENT
  Age: 7 Year
  Sex: Female

DRUGS (4)
  1. MYCOPHENOLATE MOFETIL [Suspect]
     Indication: PRODUCT USED FOR UNKNOWN INDICATION
  2. PREDNISOLONE [Suspect]
     Indication: PRODUCT USED FOR UNKNOWN INDICATION
  3. IMMUNE GLOBULIN NOS [Suspect]
     Indication: EVANS SYNDROME
  4. RITUXIMAB [Concomitant]
     Indication: EVANS SYNDROME

REACTIONS (12)
  - COUGH [None]
  - FATIGUE [None]
  - RIGHT ATRIAL HYPERTROPHY [None]
  - HERPES ZOSTER [None]
  - DECREASED APPETITE [None]
  - PULMONARY HYPERTENSION [None]
  - ALLOGENIC BONE MARROW TRANSPLANTATION THERAPY [None]
  - CARDIOMEGALY [None]
  - RIGHT VENTRICULAR HYPERTROPHY [None]
  - PULMONARY OEDEMA [None]
  - PLEURAL EFFUSION [None]
  - PULMONARY ARTERIAL PRESSURE ABNORMAL [None]
